FAERS Safety Report 22184885 (Version 6)
Quarter: 2025Q2

REPORT INFORMATION
  Report Type: Spontaneous
  Country: DE (occurrence: DE)
  Receive Date: 20230407
  Receipt Date: 20250421
  Transmission Date: 20250717
  Serious: Yes (Other)
  Sender: ALKEM
  Company Number: None

PATIENT
  Age: 14 Month
  Sex: Male

DRUGS (29)
  1. MYCOPHENOLATE MOFETIL [Suspect]
     Active Substance: MYCOPHENOLATE MOFETIL
     Indication: Prophylaxis against graft versus host disease
     Dosage: 1200 MILLIGRAM/SQ. METER, QD
     Route: 065
  2. CEFUROXIME AXETIL [Suspect]
     Active Substance: CEFUROXIME AXETIL
     Indication: Chronic granulomatous disease
     Route: 065
  3. CEFUROXIME AXETIL [Suspect]
     Active Substance: CEFUROXIME AXETIL
     Indication: Crohn^s disease
  4. ITRACONAZOLE [Suspect]
     Active Substance: ITRACONAZOLE
     Indication: Chronic granulomatous disease
     Route: 065
  5. LEVETIRACETAM [Suspect]
     Active Substance: LEVETIRACETAM
     Indication: Seizure prophylaxis
     Dosage: 20 MILLIGRAM/KILOGRAM, QD
     Route: 065
  6. METHYLPREDNISOLONE [Suspect]
     Active Substance: METHYLPREDNISOLONE
     Indication: Crohn^s disease
     Dosage: 20 MILLIGRAM/KILOGRAM, QD
     Route: 065
  7. THYMOCYTE IMMUNE GLOBULIN NOS [Suspect]
     Active Substance: THYMOCYTE IMMUNE GLOBULIN NOS
     Indication: Allogenic stem cell transplantation
     Dosage: 20 MILLIGRAM/KILOGRAM, QD
     Route: 065
  8. BUSULFAN [Suspect]
     Active Substance: BUSULFAN
     Indication: Allogenic stem cell transplantation
     Route: 065
  9. BUSULFAN [Suspect]
     Active Substance: BUSULFAN
     Indication: Chronic granulomatous disease
     Route: 065
  10. BUSULFAN [Suspect]
     Active Substance: BUSULFAN
     Indication: Bone marrow conditioning regimen
  11. CEFOTAXIME [Suspect]
     Active Substance: CEFOTAXIME SODIUM
     Indication: Antibiotic therapy
     Route: 065
  12. CEFOTAXIME [Suspect]
     Active Substance: CEFOTAXIME SODIUM
     Route: 065
  13. FLUDARABINE [Suspect]
     Active Substance: FLUDARABINE PHOSPHATE
     Indication: Allogenic stem cell transplantation
     Dosage: 30 MILLIGRAM/SQ. METER, QD (EVERY ONE DAY)
     Route: 065
  14. FLUDARABINE [Suspect]
     Active Substance: FLUDARABINE PHOSPHATE
     Indication: Bone marrow conditioning regimen
  15. FLUDARABINE [Suspect]
     Active Substance: FLUDARABINE PHOSPHATE
     Indication: Chronic granulomatous disease
  16. GRAFALON [Suspect]
     Active Substance: LAPINE T-LYMPHOCYTE IMMUNE GLOBULIN
     Indication: Allogenic stem cell transplantation
     Dosage: 20 MILLIGRAM/KILOGRAM, QD (EVERY 1 DAY)
     Route: 065
  17. GRAFALON [Suspect]
     Active Substance: LAPINE T-LYMPHOCYTE IMMUNE GLOBULIN
     Indication: Bone marrow conditioning regimen
  18. GRAFALON [Suspect]
     Active Substance: LAPINE T-LYMPHOCYTE IMMUNE GLOBULIN
     Indication: Chronic granulomatous disease
  19. GRANULOCYTE COLONY-STIMULATING FACTOR NOS [Suspect]
     Active Substance: GRANULOCYTE COLONY-STIMULATING FACTOR NOS
     Indication: Product used for unknown indication
     Dosage: 5 MILLIGRAM/KILOGRAM, QD (EVERY ONE DAY)
     Route: 065
  20. LENOGRASTIM [Suspect]
     Active Substance: LENOGRASTIM
     Indication: Product used for unknown indication
     Dosage: 5 MILLIGRAM/KILOGRAM, QD
     Route: 065
  21. METRONIDAZOLE [Suspect]
     Active Substance: METRONIDAZOLE
     Indication: Antibiotic therapy
     Route: 067
  22. METRONIDAZOLE [Suspect]
     Active Substance: METRONIDAZOLE
     Route: 067
  23. THIOTEPA [Suspect]
     Active Substance: THIOTEPA
     Indication: Allogenic stem cell transplantation
     Dosage: 10 MILLIGRAM/KILOGRAM, QD (EVERY ONE DAY)
     Route: 065
  24. THIOTEPA [Suspect]
     Active Substance: THIOTEPA
     Indication: Bone marrow conditioning regimen
  25. THIOTEPA [Suspect]
     Active Substance: THIOTEPA
     Indication: Chronic granulomatous disease
  26. AMPHOTERICIN B [Concomitant]
     Active Substance: AMPHOTERICIN B
     Indication: Antifungal prophylaxis
     Route: 042
  27. AMPHOTERICIN B [Concomitant]
     Active Substance: AMPHOTERICIN B
     Route: 065
  28. HEPARIN [Concomitant]
     Active Substance: HEPARIN SODIUM
     Indication: Prophylaxis
     Route: 065
  29. HEPARIN [Concomitant]
     Active Substance: HEPARIN SODIUM
     Route: 042

REACTIONS (8)
  - Venoocclusive liver disease [Unknown]
  - Adenovirus infection [Unknown]
  - Pyrexia [Unknown]
  - Serratia infection [Unknown]
  - Sepsis [Unknown]
  - Crohn^s disease [Unknown]
  - Graft versus host disease [Unknown]
  - Serratia sepsis [Unknown]
